FAERS Safety Report 5535088-8 (Version None)
Quarter: 2007Q4

REPORT INFORMATION
  Report Type: 
  Country: None (occurrence: None)
  Receive Date: 20071203
  Receipt Date: 20071119
  Transmission Date: 20080405
  Serious: Yes (Death, Hospitalization)
  Sender: FDA-Public Use
  Company Number: 17912

PATIENT
  Age: 14 Year
  Sex: Female

DRUGS (2)
  1. VINCRISTINE [Suspect]
     Dosage: 2 MG DAILY IV
     Route: 042
     Dates: start: 20070315, end: 20070315
  2. METHOTREXATE [Suspect]
     Dosage: 136 MG DAILY IV
     Route: 042
     Dates: start: 20070315, end: 20070315

REACTIONS (10)
  - CARDIAC FAILURE [None]
  - COMA [None]
  - ENCEPHALOPATHY [None]
  - ENTEROBACTER PNEUMONIA [None]
  - FEBRILE BONE MARROW APLASIA [None]
  - GENERAL PHYSICAL HEALTH DETERIORATION [None]
  - HEPATIC FAILURE [None]
  - HEPATITIS [None]
  - MULTI-ORGAN FAILURE [None]
  - SEPTIC SHOCK [None]
